FAERS Safety Report 5530398-2 (Version None)
Quarter: 2007Q4

REPORT INFORMATION
  Report Type: 
  Country: None (occurrence: None)
  Receive Date: 20071130
  Receipt Date: 20071121
  Transmission Date: 20080405
  Serious: Yes (Death, Life-Threatening, Disabling, Other)
  Sender: FDA-Public Use
  Company Number: GB-JNJFOC-20071109520

PATIENT
  Age: 60 Year
  Sex: Male
  Weight: 88 kg

DRUGS (7)
  1. REMICADE [Suspect]
     Route: 042
  2. REMICADE [Suspect]
     Indication: DRUG USE FOR UNKNOWN INDICATION
     Route: 042
  3. ASPIRIN [Concomitant]
     Route: 048
  4. INSULIN [Concomitant]
     Route: 058
  5. MERCAPTOPURINE [Concomitant]
     Route: 048
  6. RAMIPRIL [Concomitant]
     Route: 048
  7. LEVOTHYROXINE SODIUM [Concomitant]
     Route: 048

REACTIONS (1)
  - DIABETIC KETOACIDOSIS [None]
